FAERS Safety Report 4989705-1 (Version None)
Quarter: 2006Q2

REPORT INFORMATION
  Report Type: 
  Country: None (occurrence: None)
  Receive Date: 20060501
  Receipt Date: 20060419
  Transmission Date: 20061013
  Serious: Yes (Other)
  Sender: FDA-Public Use
  Company Number: 060053

PATIENT
  Age: 66 Year
  Sex: Male

DRUGS (1)
  1. HALFLYTELY [Suspect]
     Indication: COLONOSCOPY
     Dosage: 20 MG/2L, 1X,  PO
     Route: 048
     Dates: start: 20060406

REACTIONS (2)
  - COLITIS ISCHAEMIC [None]
  - LIPOMA [None]
